FAERS Safety Report 5902466-4 (Version None)
Quarter: 2008Q3

REPORT INFORMATION
  Report Type: 
  Country: None (occurrence: None)
  Receive Date: 20080919
  Receipt Date: 20080724
  Transmission Date: 20090109
  Serious: No
  Sender: FDA-Public Use
  Company Number: US-WYE-H05267108

PATIENT

DRUGS (2)
  1. PRISTIQ [Suspect]
  2. PHENTERMINE [Suspect]

REACTIONS (1)
  - DRUG INTERACTION [None]
